FAERS Safety Report 5755424-7 (Version None)
Quarter: 2008Q2

REPORT INFORMATION
  Report Type: 
  Country: None (occurrence: None)
  Receive Date: 20080529
  Receipt Date: 20080529
  Transmission Date: 20081010
  Serious: Yes (Other)
  Sender: FDA-Public Use
  Company Number: None

PATIENT
  Age: 44 Year
  Sex: Female
  Weight: 68.0396 kg

DRUGS (2)
  1. FENTANYL-100 [Suspect]
     Indication: BACK INJURY
     Dosage: 1 PATCH EVRY TWO DAYS TRANSDERMAL
     Route: 062
     Dates: start: 20071201, end: 20080528
  2. FENTANYL-100 [Suspect]
     Indication: BLADDER DISORDER
     Dosage: 1 PATCH EVRY TWO DAYS TRANSDERMAL
     Route: 062
     Dates: start: 20071201, end: 20080528

REACTIONS (7)
  - DRUG ABUSER [None]
  - DRUG DETOXIFICATION [None]
  - DRUG EFFECT DECREASED [None]
  - DRUG WITHDRAWAL SYNDROME [None]
  - ILL-DEFINED DISORDER [None]
  - PAIN [None]
  - PHARMACEUTICAL PRODUCT COMPLAINT [None]
